FAERS Safety Report 8875606 (Version 1)
Quarter: 2012Q4

REPORT INFORMATION
  Report Type: 
  Country: US (occurrence: US)
  Receive Date: 20121030
  Receipt Date: 20121030
  Transmission Date: 20130627
  Serious: Yes (Other)
  Sender: FDA-Public Use
  Company Number: US-ABBOTT-11P-163-0872652-00

PATIENT
  Age: 69 None
  Sex: Male
  Weight: 65.83 kg

DRUGS (2)
  1. KALETRA TABLETS 200MG/50MG [Suspect]
     Indication: PROPHYLAXIS AGAINST HIV INFECTION
     Dosage: 200/50mg, 5 per day
     Dates: start: 20110606, end: 20110705
  2. TRUVADA [Suspect]
     Indication: PROPHYLAXIS AGAINST HIV INFECTION
     Dates: start: 20110606, end: 20110705

REACTIONS (8)
  - Motor neurone disease [Not Recovered/Not Resolved]
  - Lethargy [Recovered/Resolved]
  - Nausea [Recovered/Resolved]
  - Decreased appetite [Recovered/Resolved]
  - Weight decreased [Recovered/Resolved]
  - Paraesthesia [Not Recovered/Not Resolved]
  - Gait disturbance [Not Recovered/Not Resolved]
  - Muscle atrophy [Not Recovered/Not Resolved]
